FAERS Safety Report 9650839 (Version 2)
Quarter: 2013Q4

REPORT INFORMATION
  Report Type: Spontaneous
  Country: US (occurrence: US)
  Receive Date: 20131029
  Receipt Date: 20131108
  Transmission Date: 20140711
  Serious: Yes (Other)
  Sender: FDA-Public Use
  Company Number: US-JNJFOC-20131009871

PATIENT
  Age: 41 Year
  Sex: Female
  Weight: 86.18 kg

DRUGS (8)
  1. FENTANYL [Suspect]
     Indication: GASTRIC DISORDER
     Route: 062
     Dates: start: 2010
  2. FENTANYL [Suspect]
     Indication: INTERVERTEBRAL DISC PROTRUSION
     Route: 062
     Dates: start: 2010
  3. FENTANYL [Suspect]
     Indication: ENDOMETRIOSIS
     Route: 062
     Dates: start: 2010
  4. FENTANYL [Suspect]
     Indication: CYSTITIS INTERSTITIAL
     Route: 062
     Dates: start: 2010
  5. FENTANYL TRANSDERMAL SYSTEM [Suspect]
     Indication: GASTRIC DISORDER
     Route: 062
     Dates: start: 2010
  6. FENTANYL TRANSDERMAL SYSTEM [Suspect]
     Indication: INTERVERTEBRAL DISC PROTRUSION
     Route: 062
     Dates: start: 2010
  7. FENTANYL TRANSDERMAL SYSTEM [Suspect]
     Indication: ENDOMETRIOSIS
     Route: 062
     Dates: start: 2010
  8. FENTANYL TRANSDERMAL SYSTEM [Suspect]
     Indication: CYSTITIS INTERSTITIAL
     Route: 062
     Dates: start: 2010

REACTIONS (15)
  - Bronchitis [Unknown]
  - Delirium tremens [Not Recovered/Not Resolved]
  - Feeling hot [Recovered/Resolved]
  - Product adhesion issue [Unknown]
  - Drug dose omission [Not Recovered/Not Resolved]
  - Hyperhidrosis [Recovered/Resolved]
  - Application site erosion [Recovered/Resolved]
  - Drug ineffective [Recovered/Resolved]
  - Wrong technique in drug usage process [Recovered/Resolved]
  - Vomiting [Recovered/Resolved]
  - Pain [Recovered/Resolved]
  - Migraine [Not Recovered/Not Resolved]
  - Weight increased [Not Recovered/Not Resolved]
  - Gastric disorder [Not Recovered/Not Resolved]
  - Headache [Not Recovered/Not Resolved]
